FAERS Safety Report 10166119 (Version 2)
Quarter: 2014Q2

REPORT INFORMATION
  Report Type: Spontaneous
  Country: US (occurrence: US)
  Receive Date: 20140512
  Receipt Date: 20140512
  Transmission Date: 20141212
  Serious: Yes (Other)
  Sender: FDA-Public Use
  Company Number: US-ROCHE-1393679

PATIENT
  Age: 54 Year
  Sex: Female
  Weight: 74 kg

DRUGS (10)
  1. XELODA [Suspect]
     Indication: BREAST CANCER METASTATIC
     Dosage: 14 DAYS ON THEN 7 DAYS OFF
     Route: 048
     Dates: start: 20121210, end: 20140414
  2. AVASTIN [Suspect]
     Indication: BREAST CANCER METASTATIC
     Dosage: 6 CYCLES
     Route: 065
     Dates: start: 201002, end: 201007
  3. OMEPRAZOLE [Concomitant]
     Route: 065
  4. COUMADIN [Concomitant]
     Route: 065
  5. HCTZ [Concomitant]
     Route: 065
  6. OXYCODONE [Concomitant]
     Dosage: 2-3 TABS ONCE 4-6H P.R.N.
     Route: 065
  7. OXYCONTIN [Concomitant]
     Route: 065
  8. TAXOL [Concomitant]
     Dosage: 6 CYCLES
     Route: 065
     Dates: start: 201002, end: 201007
  9. TAMOXIFEN [Concomitant]
  10. ZOMETA [Concomitant]

REACTIONS (3)
  - Liver disorder [Not Recovered/Not Resolved]
  - Rosacea [Unknown]
  - Rash [Unknown]
